FAERS Safety Report 9917769 (Version 1)
Quarter: 2014Q1

REPORT INFORMATION
  Report Type: Spontaneous
  Country: FR (occurrence: FR)
  Receive Date: 20140221
  Receipt Date: 20140221
  Transmission Date: 20141002
  Serious: Yes (Hospitalization)
  Sender: FDA-Public Use
  Company Number: FR-ABBVIE-14P-056-1203355-00

PATIENT
  Age: 33 Year
  Sex: Female

DRUGS (6)
  1. ENANTONE [Suspect]
     Indication: IN VITRO FERTILISATION
     Dosage: 1 INJECTION
     Route: 050
     Dates: start: 201212
  2. GONAL-F [Suspect]
     Indication: IN VITRO FERTILISATION
     Route: 058
     Dates: start: 20130111, end: 20130114
  3. GONAL-F [Suspect]
     Route: 058
     Dates: start: 20130115, end: 20130120
  4. CHORIOGONADOTROPIN ALFA [Suspect]
     Indication: IN VITRO FERTILISATION
     Dosage: 500 IU/ML; REGIMEN #1
     Route: 030
     Dates: start: 20130121
  5. OROMONE [Suspect]
     Indication: IN VITRO FERTILISATION
     Route: 048
     Dates: start: 20130121
  6. UTROGESTAN [Suspect]
     Indication: IN VITRO FERTILISATION
     Dosage: REGIMEN #1
     Route: 067
     Dates: start: 20130121

REACTIONS (2)
  - Ovarian hyperstimulation syndrome [Recovered/Resolved]
  - Haematocrit decreased [Recovered/Resolved]
